FAERS Safety Report 13991663 (Version 4)
Quarter: 2022Q3

REPORT INFORMATION
  Report Type: Spontaneous
  Country: US (occurrence: US)
  Receive Date: 20170920
  Receipt Date: 20220830
  Transmission Date: 20221027
  Serious: No
  Sender: FDA-Public Use
  Company Number: US-JNJFOC-20170808705

PATIENT
  Sex: Male

DRUGS (20)
  1. RISPERDAL [Suspect]
     Active Substance: RISPERIDONE
     Indication: Bipolar disorder
     Route: 048
     Dates: start: 20030403, end: 20030501
  2. RISPERDAL [Suspect]
     Active Substance: RISPERIDONE
     Indication: Attention deficit hyperactivity disorder
     Route: 048
     Dates: start: 20031008
  3. RISPERDAL [Suspect]
     Active Substance: RISPERIDONE
     Indication: Oppositional defiant disorder
     Route: 048
     Dates: start: 20050117, end: 20080110
  4. RISPERDAL [Suspect]
     Active Substance: RISPERIDONE
     Indication: Depression
     Route: 048
     Dates: start: 20080510, end: 20080731
  5. RISPERDAL [Suspect]
     Active Substance: RISPERIDONE
     Indication: Aggression
     Route: 048
     Dates: start: 20050317, end: 20060330
  6. INVEGA [Suspect]
     Active Substance: PALIPERIDONE
     Indication: Bipolar disorder
     Dosage: VARYING DOSES OF 3 MG, 6 MG AND 9 MG
     Route: 048
     Dates: start: 20090620, end: 20140402
  7. INVEGA [Suspect]
     Active Substance: PALIPERIDONE
     Indication: Attention deficit hyperactivity disorder
  8. INVEGA [Suspect]
     Active Substance: PALIPERIDONE
     Indication: Oppositional defiant disorder
  9. INVEGA [Suspect]
     Active Substance: PALIPERIDONE
     Indication: Depression
  10. INVEGA [Suspect]
     Active Substance: PALIPERIDONE
     Indication: Aggression
  11. RISPERIDONE [Suspect]
     Active Substance: RISPERIDONE
     Indication: Bipolar disorder
     Route: 048
     Dates: start: 20080708, end: 2008
  12. RISPERIDONE [Suspect]
     Active Substance: RISPERIDONE
     Indication: Attention deficit hyperactivity disorder
  13. RISPERIDONE [Suspect]
     Active Substance: RISPERIDONE
     Indication: Oppositional defiant disorder
  14. RISPERIDONE [Suspect]
     Active Substance: RISPERIDONE
     Indication: Depression
  15. RISPERIDONE [Suspect]
     Active Substance: RISPERIDONE
     Indication: Aggression
  16. RISPERDAL M-TAB [Suspect]
     Active Substance: RISPERIDONE
     Indication: Bipolar disorder
     Route: 048
     Dates: start: 20080729
  17. RISPERDAL M-TAB [Suspect]
     Active Substance: RISPERIDONE
     Indication: Attention deficit hyperactivity disorder
  18. RISPERDAL M-TAB [Suspect]
     Active Substance: RISPERIDONE
     Indication: Oppositional defiant disorder
  19. RISPERDAL M-TAB [Suspect]
     Active Substance: RISPERIDONE
     Indication: Depression
  20. RISPERDAL M-TAB [Suspect]
     Active Substance: RISPERIDONE
     Indication: Aggression

REACTIONS (2)
  - Emotional distress [Unknown]
  - Gynaecomastia [Unknown]
